FAERS Safety Report 19494145 (Version 1)
Quarter: 2021Q3

REPORT INFORMATION
  Report Type: Spontaneous
  Country: JP (occurrence: JP)
  Receive Date: 20210706
  Receipt Date: 20210706
  Transmission Date: 20211014
  Serious: Yes (Hospitalization, Other)
  Sender: FDA-Public Use
  Company Number: JP-STRIDES ARCOLAB LIMITED-2021SP007102

PATIENT
  Age: 51 Year
  Sex: Female

DRUGS (4)
  1. PREDNISOLONE. [Suspect]
     Active Substance: PREDNISOLONE
     Indication: HEREDITARY MOTOR AND SENSORY NEUROPATHY
     Dosage: UNK, DOSE REDUCED
     Route: 048
  2. METHYLPREDNISOLONE. [Suspect]
     Active Substance: METHYLPREDNISOLONE
     Indication: HEREDITARY MOTOR AND SENSORY NEUROPATHY
  3. PREDNISOLONE. [Suspect]
     Active Substance: PREDNISOLONE
     Indication: NEUROMYELITIS OPTICA SPECTRUM DISORDER
     Dosage: 30 MILLIGRAM
     Route: 048
  4. METHYLPREDNISOLONE. [Suspect]
     Active Substance: METHYLPREDNISOLONE
     Indication: NEUROMYELITIS OPTICA SPECTRUM DISORDER
     Dosage: UNK, PULSE THERAPY, 3 COURSES
     Route: 065

REACTIONS (4)
  - Condition aggravated [Recovered/Resolved]
  - Tremor [Recovered/Resolved]
  - Gastric ulcer [Recovered/Resolved]
  - Paraesthesia [Recovered/Resolved]
